FAERS Safety Report 9884528 (Version 1)
Quarter: 2014Q1

REPORT INFORMATION
  Report Type: Spontaneous
  Country: US (occurrence: US)
  Receive Date: 20140210
  Receipt Date: 20140210
  Transmission Date: 20141002
  Serious: No
  Sender: FDA-Public Use
  Company Number: US-ALLERGAN-1319770US

PATIENT
  Age: 23 Year
  Sex: Female

DRUGS (4)
  1. BOTOX [Suspect]
     Indication: MIGRAINE
     Dosage: UNK, SINGLE
     Route: 030
  2. TOPAMAX [Concomitant]
     Indication: MIGRAINE
  3. VICODIN [Concomitant]
     Indication: HEADACHE
  4. IMITREX [Concomitant]
     Indication: MIGRAINE

REACTIONS (1)
  - Drug ineffective [Unknown]
